FAERS Safety Report 4682905-X (Version None)
Quarter: 2005Q2

REPORT INFORMATION
  Report Type: 
  Country: None (occurrence: None)
  Receive Date: 20050531
  Receipt Date: 20040504
  Transmission Date: 20051028
  Serious: Yes (Other)
  Sender: FDA-Public Use
  Company Number: 200318377US

PATIENT
  Age: 62 Year
  Sex: Female
  Weight: 78 kg

DRUGS (3)
  1. LOVENOX [Suspect]
     Indication: FACTOR V LEIDEN MUTATION
     Dosage: 30 MG BID INJ DURATION: A FEW YEARS
  2. PARACETAMOL, OXYCODONE HYDROCHLORIDE (PERCOCET) [Concomitant]
  3. LASIX [Concomitant]

REACTIONS (3)
  - ABNORMAL CHEST SOUND [None]
  - INJECTION SITE PAIN [None]
  - PULMONARY EMBOLISM [None]
